FAERS Safety Report 4520454-X (Version None)
Quarter: 2004Q4

REPORT INFORMATION
  Report Type: 
  Country: None (occurrence: None)
  Receive Date: 20041203
  Receipt Date: 20041122
  Transmission Date: 20050328
  Serious: Yes (Other)
  Sender: FDA-Public Use
  Company Number: HQWYE645523NOV04

PATIENT
  Age: 62 Year
  Sex: Female
  Weight: 72.64 kg

DRUGS (6)
  1. INDERAL LA [Suspect]
     Indication: MIGRAINE
     Dosage: 120 MG 1X PER 1 DAY, ORAL
     Route: 048
     Dates: start: 19840101
  2. INDERAL LA [Suspect]
     Indication: TACHYCARDIA
     Dosage: 120 MG 1X PER 1 DAY, ORAL
     Route: 048
     Dates: start: 19840101
  3. FISH (FISH OIL) [Concomitant]
  4. FEVERFEW (HERBAL EXTRACTS NOS) [Concomitant]
  5. VITAMINS NOS (VITAMINS NOS) [Concomitant]
  6. GLUCOSAMINE W/CHONDROITIN SULFATES (ASCORBIC ACIC/CHONDROITIN SULFATE/ [Concomitant]

REACTIONS (3)
  - FULL BLOOD COUNT DECREASED [None]
  - POST PROCEDURAL HAEMORRHAGE [None]
  - SINUS DISORDER [None]
